FAERS Safety Report 22280511 (Version 1)
Quarter: 2023Q2

REPORT INFORMATION
  Report Type: Spontaneous
  Country: US (occurrence: None)
  Receive Date: 20230502
  Receipt Date: 20230502
  Transmission Date: 20230722
  Serious: No
  Sender: FDA-Public Use
  Company Number: None

PATIENT
  Age: 34 Year
  Sex: Female

DRUGS (1)
  1. WEGOVY [Suspect]
     Active Substance: SEMAGLUTIDE
     Indication: Obesity
     Dates: start: 20230301, end: 20230501

REACTIONS (8)
  - Vision blurred [None]
  - Nausea [None]
  - Vomiting [None]
  - Fatigue [None]
  - Headache [None]
  - Feeling cold [None]
  - Diarrhoea [None]
  - Heart rate increased [None]
